FAERS Safety Report 7156306-9 (Version None)
Quarter: 2010Q4

REPORT INFORMATION
  Report Type: 
  Country: None (occurrence: None)
  Receive Date: 20101123
  Receipt Date: 20101006
  Transmission Date: 20110411
  Serious: Yes (Hospitalization)
  Sender: FDA-Public Use
  Company Number: 015146

PATIENT
  Sex: Female
  Weight: 37.9 kg

DRUGS (4)
  1. CIMZIA [Suspect]
     Indication: IRRITABLE BOWEL SYNDROME
     Dosage: 400 MG 1X3 WEEKS, SUBCUTANEOUS
     Route: 058
     Dates: start: 20090727
  2. MULTI-VITAMINS [Concomitant]
  3. CALCIUM [Concomitant]
  4. ACCOMIN MULTIVITAMIN [Concomitant]

REACTIONS (3)
  - CROHN'S DISEASE [None]
  - SMALL INTESTINAL RESECTION [None]
  - WEIGHT DECREASED [None]
